FAERS Safety Report 6529957-X (Version None)
Quarter: 2010Q1

REPORT INFORMATION
  Report Type: 
  Country: None (occurrence: None)
  Receive Date: 20100107
  Receipt Date: 20100104
  Transmission Date: 20100710
  Serious: Yes (Death, Life-Threatening, Hospitalization)
  Sender: FDA-Public Use
  Company Number: US-ELI_LILLY_AND_COMPANY-US200603001235

PATIENT
  Sex: Male
  Weight: 130.61 kg

DRUGS (8)
  1. SOMATROPIN [Suspect]
     Indication: GROWTH HORMONE DEFICIENCY
     Dosage: 0.7 MG, DAILY (1/D)
     Route: 058
     Dates: start: 20010115, end: 20060205
  2. PRILOSEC [Concomitant]
     Indication: GASTROOESOPHAGEAL REFLUX DISEASE
     Dosage: UNK, UNK
     Dates: start: 20000101
  3. ARTHROTEC                               /UNK/ [Concomitant]
     Indication: ARTHRITIS
     Dosage: UNK, UNK
     Dates: start: 19990101
  4. FLOMAX [Concomitant]
     Indication: BENIGN PROSTATIC HYPERPLASIA
     Dosage: UNK, UNK
     Dates: start: 19990101
  5. CARDIZEM [Concomitant]
     Indication: ARTERIOSCLEROSIS
     Dates: start: 20000618
  6. ALBUTEROL [Concomitant]
     Indication: ASTHMA
     Dosage: UNK, UNK
     Dates: start: 20000101
  7. ACCUPRIL [Concomitant]
     Indication: HYPERTENSION
     Dosage: UNK, UNK
     Dates: start: 20000101
  8. PLAVIX [Concomitant]
     Indication: ARTERIOSCLEROSIS
     Dosage: UNK, UNK
     Dates: start: 20030701

REACTIONS (1)
  - COLON CANCER METASTATIC [None]
